FAERS Safety Report 12562527 (Version 1)
Quarter: 2016Q3

REPORT INFORMATION
  Report Type: Spontaneous
  Country: US (occurrence: US)
  Receive Date: 20160715
  Receipt Date: 20160715
  Transmission Date: 20161109
  Serious: No
  Sender: FDA-Public Use
  Company Number: US-NOVOPROD-488939

PATIENT
  Age: 54 Year
  Sex: Female
  Weight: 73.1 kg

DRUGS (3)
  1. TRESIBA [Suspect]
     Active Substance: INSULIN DEGLUDEC
     Dosage: 14 UNK, UNK
     Route: 058
     Dates: start: 201603
  2. NOVOLOG [Suspect]
     Active Substance: INSULIN ASPART
     Indication: TYPE 2 DIABETES MELLITUS
     Dosage: SLIDING SCALE TID
     Route: 058
     Dates: start: 2015
  3. TRESIBA [Suspect]
     Active Substance: INSULIN DEGLUDEC
     Indication: TYPE 2 DIABETES MELLITUS
     Dosage: 18 U, UNK
     Route: 058
     Dates: start: 20160222, end: 201603

REACTIONS (1)
  - Blood glucose decreased [Recovering/Resolving]

NARRATIVE: CASE EVENT DATE: 201603
